FAERS Safety Report 5736751-6 (Version None)
Quarter: 2008Q2

REPORT INFORMATION
  Report Type: 
  Country: None (occurrence: None)
  Receive Date: 20080513
  Receipt Date: 20080505
  Transmission Date: 20081010
  Serious: Yes (Other)
  Sender: FDA-Public Use
  Company Number: JM-BOEHRINGER INGELHEIM GMBH, GERMANY-2008-BP-07183RO

PATIENT
  Sex: Male
  Weight: 2.5 kg

DRUGS (4)
  1. LITHIUM CARBONATE [Suspect]
     Indication: BIPOLAR DISORDER
     Route: 064
  2. HALDOL [Suspect]
     Indication: BIPOLAR DISORDER
     Route: 064
  3. COGENTIN [Suspect]
     Indication: BIPOLAR DISORDER
     Route: 064
  4. MULTI-VITAMINS [Concomitant]
     Indication: VITAMIN SUPPLEMENTATION

REACTIONS (2)
  - PLACENTAL DISORDER [None]
  - SMALL FOR DATES BABY [None]
